FAERS Safety Report 11810806 (Version 6)
Quarter: 2016Q2

REPORT INFORMATION
  Report Type: Spontaneous
  Country: US (occurrence: US)
  Receive Date: 20151208
  Receipt Date: 20160511
  Transmission Date: 20160815
  Serious: Yes (Hospitalization)
  Sender: FDA-Public Use
  Company Number: US-GLAXOSMITHKLINE-US2015172024

PATIENT
  Age: 70 Year
  Sex: Male

DRUGS (8)
  1. SOLU-MEDROL [Concomitant]
     Active Substance: METHYLPREDNISOLONE SODIUM SUCCINATE
  2. VENTOLIN HFA [Suspect]
     Active Substance: ALBUTEROL SULFATE
     Indication: CHRONIC OBSTRUCTIVE PULMONARY DISEASE
     Dosage: UNK
  3. PREDNISONE. [Concomitant]
     Active Substance: PREDNISONE
     Indication: PRODUCT USED FOR UNKNOWN INDICATION
     Dosage: UNK
  4. CRESTOR [Concomitant]
     Active Substance: ROSUVASTATIN CALCIUM
  5. LASIX [Concomitant]
     Active Substance: FUROSEMIDE
  6. BREO ELLIPTA [Concomitant]
     Active Substance: FLUTICASONE FUROATE\VILANTEROL TRIFENATATE
  7. VENTOLIN HFA [Suspect]
     Active Substance: ALBUTEROL SULFATE
     Indication: ASTHMA
     Dosage: 2 PUFF(S), INHALED PRN
     Route: 055
     Dates: start: 200501
  8. POTASSIUM SUPPLEMENT [Concomitant]
     Active Substance: POTASSIUM

REACTIONS (5)
  - Product quality issue [Unknown]
  - Condition aggravated [Recovered/Resolved]
  - Drug ineffective [Unknown]
  - Wheezing [Recovered/Resolved]
  - Device use error [Recovered/Resolved]

NARRATIVE: CASE EVENT DATE: 2015
